FAERS Safety Report 12380092 (Version 1)
Quarter: 2016Q2

REPORT INFORMATION
  Report Type: Spontaneous
  Country: CA (occurrence: None)
  Receive Date: 20160517
  Receipt Date: 20160517
  Transmission Date: 20160815
  Serious: Yes (Disabling, Other)
  Sender: FDA-Public Use
  Company Number: None

PATIENT
  Age: 5 Year
  Sex: Female
  Weight: 16.33 kg

DRUGS (2)
  1. DULCOLAX NOS [Concomitant]
     Active Substance: BISACODYL OR DOCUSATE SODIUM
  2. POLYETHYLENE GLYCOL 3350, PEG 33 [Suspect]
     Active Substance: POLYETHYLENE GLYCOL 3350
     Indication: CONSTIPATION
     Dosage: 17 GRAMS IN THE MORNING TAKEN BY MOUTH
     Route: 048
     Dates: start: 20140825, end: 20160515

REACTIONS (14)
  - Electrocardiogram QT prolonged [None]
  - Abdominal pain [None]
  - Dental caries [None]
  - Anal incontinence [None]
  - Pruritus [None]
  - Skin irritation [None]
  - Toxicity to various agents [None]
  - Urine abnormality [None]
  - Pollakiuria [None]
  - Urine phosphorus increased [None]
  - Blood calcium abnormal [None]
  - Paraesthesia [None]
  - Decreased appetite [None]
  - Bacterial test [None]

NARRATIVE: CASE EVENT DATE: 20160515
